FAERS Safety Report 16168955 (Version 1)
Quarter: 2019Q2

REPORT INFORMATION
  Report Type: Spontaneous
  Country: US (occurrence: US)
  Receive Date: 20190305
  Receipt Date: 20190305
  Transmission Date: 20190711
  Serious: No
  Sender: FDA-Public Use
  Company Number: None

PATIENT
  Age: 83 Year
  Sex: Female

DRUGS (1)
  1. COSENTYX [Suspect]
     Active Substance: SECUKINUMAB
     Dosage: APRIL 2018-NOVEMBER
     Dates: start: 201804

REACTIONS (2)
  - Psoriasis [None]
  - Chills [None]

NARRATIVE: CASE EVENT DATE: 20190305
